FAERS Safety Report 17096705 (Version 3)
Quarter: 2025Q4

REPORT INFORMATION
  Report Type: Spontaneous
  Country: EU (occurrence: EU)
  Receive Date: 20191202
  Receipt Date: 20251201
  Transmission Date: 20260118
  Serious: Yes (Death, Other)
  Sender: AUROBINDO
  Company Number: EU-002147023-NVSC2019NL038881

PATIENT
  Sex: Female

DRUGS (4)
  1. ESCITALOPRAM [Suspect]
     Active Substance: ESCITALOPRAM OXALATE
     Indication: Depression
     Dosage: UNK
     Route: 065
  2. LEVOCETIRIZINE [Suspect]
     Active Substance: LEVOCETIRIZINE
     Indication: Product used for unknown indication
     Dosage: UNK
     Route: 065
  3. ACETAMINOPHEN [Suspect]
     Active Substance: ACETAMINOPHEN
     Indication: Pain
     Dosage: UNK
     Route: 065
  4. GLYCOPYRRONIUM\INDACATEROL [Suspect]
     Active Substance: GLYCOPYRRONIUM\INDACATEROL
     Indication: Product used for unknown indication
     Dosage: UNK
     Route: 065

REACTIONS (7)
  - Arrhythmia [Fatal]
  - Cardiac failure [Fatal]
  - Muscle spasms [Fatal]
  - Chest pain [Fatal]
  - Pain in extremity [Fatal]
  - Stress [Unknown]
  - Vomiting [Unknown]
